FAERS Safety Report 15634530 (Version 1)
Quarter: 2018Q4

REPORT INFORMATION
  Report Type: Spontaneous
  Country: US (occurrence: US)
  Receive Date: 20181119
  Receipt Date: 20181119
  Transmission Date: 20190205
  Serious: Yes (Other)
  Sender: FDA-Public Use
  Company Number: None

PATIENT
  Age: 28 Year
  Sex: Female
  Weight: 73.48 kg

DRUGS (1)
  1. NEXPLANON [Suspect]
     Active Substance: ETONOGESTREL
     Dates: start: 20160307, end: 20180824

REACTIONS (5)
  - Alopecia [None]
  - Glucose tolerance impaired [None]
  - Weight increased [None]
  - Nausea [None]
  - Blood cholesterol abnormal [None]

NARRATIVE: CASE EVENT DATE: 20160601
